FAERS Safety Report 23436902 (Version 3)
Quarter: 2024Q2

REPORT INFORMATION
  Report Type: Report from Study
  Country: BE (occurrence: BE)
  Receive Date: 20240124
  Receipt Date: 20240428
  Transmission Date: 20240716
  Serious: Yes (Other)
  Sender: FDA-Public Use
  Company Number: BE-JNJFOC-20240155176

PATIENT
  Age: 68 Year
  Sex: Female
  Weight: 54 kg

DRUGS (3)
  1. SPRAVATO [Suspect]
     Active Substance: ESKETAMINE
     Indication: Depression
     Dosage: 28 MG, 14 TOTAL DOSES
     Dates: start: 20230627, end: 20230818
  2. SPRAVATO [Suspect]
     Active Substance: ESKETAMINE
     Dosage: 56 MG, 3 TOTAL DOSES
     Dates: start: 20230823, end: 20230829
  3. SPRAVATO [Suspect]
     Active Substance: ESKETAMINE
     Dosage: 28 MG, 15 TOTAL DOSES
     Dates: start: 20230901, end: 20240109

REACTIONS (1)
  - Hallucinations, mixed [Recovered/Resolved with Sequelae]

NARRATIVE: CASE EVENT DATE: 20240109
